FAERS Safety Report 4629116-1 (Version None)
Quarter: 2005Q2

REPORT INFORMATION
  Report Type: 
  Country: None (occurrence: None)
  Receive Date: 20050404
  Receipt Date: 20050404
  Transmission Date: 20051028
  Serious: Yes (Hospitalization)
  Sender: FDA-Public Use
  Company Number: None

PATIENT
  Age: 55 Year
  Sex: Female
  Weight: 134.2647 kg

DRUGS (2)
  1. DOXORUBICIN HCL [Suspect]
     Indication: BREAST CANCER
     Dosage: 60MG/M2 IV 14 DAYS
     Route: 042
     Dates: start: 20041115
  2. CYCLOPHOSPHAMIDE [Suspect]
     Indication: BREAST CANCER
     Dosage: 600MG/M2 IV 14 DAYS
     Route: 042
     Dates: start: 20050110

REACTIONS (3)
  - HAEMOGLOBIN DECREASED [None]
  - PYREXIA [None]
  - TRANSFUSION REACTION [None]
